FAERS Safety Report 12083952 (Version 1)
Quarter: 2016Q1

REPORT INFORMATION
  Report Type: Spontaneous
  Country: US (occurrence: None)
  Receive Date: 20160216
  Receipt Date: 20160216
  Transmission Date: 20160526
  Serious: Yes (Life-Threatening, Hospitalization)
  Sender: FDA-Public Use
  Company Number: None

PATIENT
  Age: 63 Year
  Sex: Female
  Weight: 85 kg

DRUGS (14)
  1. BIOTIN [Concomitant]
     Active Substance: BIOTIN
  2. FLECAINIDE [Concomitant]
     Active Substance: FLECAINIDE
  3. MICONAZOLE. [Concomitant]
     Active Substance: MICONAZOLE
  4. ONDANSETRON [Concomitant]
     Active Substance: ONDANSETRON
  5. APIXABAN 5 MG BRISTOL-MYERS SQUIBB [Suspect]
     Active Substance: APIXABAN
     Indication: ATRIAL FIBRILLATION
     Route: 048
     Dates: start: 20140807, end: 20160214
  6. AMLODIPINE [Concomitant]
     Active Substance: AMLODIPINE BESYLATE
  7. POTASSIUM CHLORIDE. [Concomitant]
     Active Substance: POTASSIUM CHLORIDE
  8. CALCIUM/VITAMIN D [Concomitant]
     Active Substance: CALCIUM\VITAMIN D
  9. CYANOCOBALAMIN. [Concomitant]
     Active Substance: CYANOCOBALAMIN
  10. METOPROLOL. [Concomitant]
     Active Substance: METOPROLOL
  11. NITROGLYCERIN. [Concomitant]
     Active Substance: NITROGLYCERIN
  12. MULTIVITAMIN [Concomitant]
     Active Substance: VITAMINS
  13. DOCUSATE [Concomitant]
     Active Substance: DOCUSATE
  14. SIMVASTATIN. [Concomitant]
     Active Substance: SIMVASTATIN

REACTIONS (1)
  - Haemorrhage intracranial [None]

NARRATIVE: CASE EVENT DATE: 20160214
